FAERS Safety Report 10974257 (Version 1)
Quarter: 2015Q2

REPORT INFORMATION
  Report Type: Spontaneous
  Country: US (occurrence: US)
  Receive Date: 20150401
  Receipt Date: 20150401
  Transmission Date: 20150821
  Serious: Yes (Other)
  Sender: FDA-Public Use
  Company Number: US-BAUSCH-BL-2015-010094

PATIENT
  Age: 1 Month
  Sex: Male
  Weight: 5.45 kg

DRUGS (2)
  1. ACANYA [Suspect]
     Active Substance: BENZOYL PEROXIDE\CLINDAMYCIN PHOSPHATE
     Route: 063
  2. ACANYA [Suspect]
     Active Substance: BENZOYL PEROXIDE\CLINDAMYCIN PHOSPHATE
     Indication: PRODUCT USED FOR UNKNOWN INDICATION
     Route: 015

REACTIONS (4)
  - Colitis [Recovering/Resolving]
  - Maternal drugs affecting foetus [Recovering/Resolving]
  - Exposure during breast feeding [Recovered/Resolved]
  - Gastroenteritis [Recovering/Resolving]

NARRATIVE: CASE EVENT DATE: 20150117
